FAERS Safety Report 24337090 (Version 1)
Quarter: 2024Q3

REPORT INFORMATION
  Report Type: Spontaneous
  Country: CA (occurrence: CA)
  Receive Date: 20240919
  Receipt Date: 20240919
  Transmission Date: 20241016
  Serious: Yes (Other)
  Sender: ROCHE
  Company Number: CA-002147023-NVSC2024CA183130

PATIENT
  Sex: Female

DRUGS (2)
  1. LUCENTIS [Suspect]
     Active Substance: RANIBIZUMAB
     Indication: Neovascular age-related macular degeneration
     Dosage: UNK
     Route: 050
  2. BEVACIZUMAB [Suspect]
     Active Substance: BEVACIZUMAB
     Indication: Neovascular age-related macular degeneration
     Dosage: UNK
     Route: 050

REACTIONS (10)
  - Anxiety [Unknown]
  - Blindness [Unknown]
  - Eye disorder [Unknown]
  - Glaucoma [Unknown]
  - Intraocular pressure increased [Unknown]
  - Iris injury [Unknown]
  - Migraine [Unknown]
  - Thyroid disorder [Unknown]
  - Visual impairment [Unknown]
  - Off label use [Unknown]
